FAERS Safety Report 20601189 (Version 1)
Quarter: 2022Q1

REPORT INFORMATION
  Report Type: Spontaneous
  Country: US (occurrence: US)
  Receive Date: 20220316
  Receipt Date: 20220316
  Transmission Date: 20220423
  Serious: No
  Sender: FDA-Public Use
  Company Number: US-NOVARTISTESTPH-NVSC2022US059598

PATIENT
  Sex: Female

DRUGS (1)
  1. RECLAST [Suspect]
     Active Substance: ZOLEDRONIC ACID
     Indication: Product used for unknown indication
     Dosage: UNK (ONCE A YEAR)
     Route: 065
     Dates: start: 20220310

REACTIONS (4)
  - Influenza [Unknown]
  - Cough [Unknown]
  - Pruritus [Unknown]
  - Muscle spasms [Unknown]
